FAERS Safety Report 7463293-2 (Version None)
Quarter: 2011Q2

REPORT INFORMATION
  Report Type: 
  Country: None (occurrence: None)
  Receive Date: 20110506
  Receipt Date: 20110504
  Transmission Date: 20111010
  Serious: Yes (Life-Threatening, Hospitalization)
  Sender: FDA-Public Use
  Company Number: US-ROCHE-775401

PATIENT
  Age: 39 Year
  Sex: Female
  Weight: 107.5 kg

DRUGS (2)
  1. PACLITAXEL [Suspect]
     Indication: BREAST CANCER
     Dosage: TOTAL DOSE: 374 MG, LAST DOSE PRIOR TOS AE: 18 JUNE 2009
     Route: 042
     Dates: start: 20090226
  2. AVASTIN [Suspect]
     Indication: BREAST CANCER
     Dosage: TOTAL DOSE: 1689 MG, LAST DOSE PRIOR TOS AE: 11 JUNE 2009
     Route: 042
     Dates: start: 20090226

REACTIONS (5)
  - PNEUMONITIS [None]
  - DYSPNOEA [None]
  - PALPITATIONS [None]
  - TACHYCARDIA [None]
  - LEFT VENTRICULAR DYSFUNCTION [None]
